FAERS Safety Report 18479039 (Version 2)
Quarter: 2020Q4

REPORT INFORMATION
  Report Type: Spontaneous
  Country: CA (occurrence: CA)
  Receive Date: 20201109
  Receipt Date: 20201111
  Transmission Date: 20210114
  Serious: Yes (Hospitalization, Other)
  Sender: FDA-Public Use
  Company Number: CA-SA-2020SA305228

PATIENT

DRUGS (2)
  1. ALEMTUZUMAB [Suspect]
     Active Substance: ALEMTUZUMAB
     Indication: RELAPSING-REMITTING MULTIPLE SCLEROSIS
     Dosage: (12 MG X 5) OVER 5 DAYS
     Route: 041
     Dates: start: 20160808, end: 20160812
  2. VITAMIN D NOS [Concomitant]
     Active Substance: VITAMIN D NOS

REACTIONS (17)
  - Hyponatraemia [Not Recovered/Not Resolved]
  - Hyperkalaemia [Not Recovered/Not Resolved]
  - Escherichia infection [Recovered/Resolved]
  - End stage renal disease [Not Recovered/Not Resolved]
  - Proteinuria [Not Recovered/Not Resolved]
  - Anuria [Not Recovered/Not Resolved]
  - Acute kidney injury [Not Recovered/Not Resolved]
  - Microcytic anaemia [Not Recovered/Not Resolved]
  - Hypovolaemia [Not Recovered/Not Resolved]
  - Hypertension [Not Recovered/Not Resolved]
  - Oliguria [Not Recovered/Not Resolved]
  - Renal necrosis [Not Recovered/Not Resolved]
  - Autoimmune hypothyroidism [Unknown]
  - Immune thrombocytopenia [Unknown]
  - Urinary tract infection [Recovered/Resolved]
  - Haematuria [Recovered/Resolved]
  - Anti-glomerular basement membrane disease [Not Recovered/Not Resolved]

NARRATIVE: CASE EVENT DATE: 20170421
